FAERS Safety Report 20590250 (Version 1)
Quarter: 2022Q1

REPORT INFORMATION
  Report Type: Spontaneous
  Country: DE (occurrence: DE)
  Receive Date: 20220314
  Receipt Date: 20220314
  Transmission Date: 20220423
  Serious: Yes (Congenital Anomaly, Other)
  Sender: FDA-Public Use
  Company Number: DE-EMBRYOTOX-202010018

PATIENT
  Sex: Male
  Weight: 3.16 kg

DRUGS (4)
  1. SERTRALINE [Suspect]
     Active Substance: SERTRALINE HYDROCHLORIDE
     Indication: Obsessive-compulsive disorder
     Dosage: 100 MILLIGRAM, QD (100 [MG/D ])
     Route: 064
     Dates: start: 20200122, end: 20201012
  2. INFLUSPLIT TETRA [Concomitant]
     Active Substance: INFLUENZA VIRUS VACCINE
     Indication: Immunisation
     Dosage: UNK
     Route: 064
     Dates: start: 20200925, end: 20200925
  3. DINOPROSTONA [Concomitant]
     Indication: Labour induction
     Dosage: UNK
     Route: 064
  4. BOOSTRIX POLIO [Concomitant]
     Active Substance: DIPHTHERIA AND TETANUS TOXOIDS AND ACELLULAR PERTUSSIS ADSORBED AND INACTIVATED POLIOVIRUS VACCINE
     Indication: Immunisation
     Dosage: UNK
     Route: 064
     Dates: start: 20200925, end: 20200925

REACTIONS (6)
  - Left ventricular false tendon [Unknown]
  - Bradycardia neonatal [Recovered/Resolved]
  - Atrial septal defect [Unknown]
  - Respiratory disorder neonatal [Recovered/Resolved]
  - Hypoglycaemia neonatal [Recovered/Resolved]
  - Foetal exposure during pregnancy [Recovered/Resolved]
